FAERS Safety Report 9002531 (Version 3)
Quarter: 2014Q3

REPORT INFORMATION
  Report Type: Spontaneous
  Country: US (occurrence: US)
  Receive Date: 20130107
  Receipt Date: 20140905
  Transmission Date: 20150326
  Serious: Yes (Life-Threatening)
  Sender: FDA-Public Use
  Company Number: US-BAYER-2013-001063

PATIENT
  Age: 32 Year
  Sex: Female
  Weight: 95.24 kg

DRUGS (4)
  1. GIANVI [Suspect]
     Active Substance: DROSPIRENONE\ETHINYL ESTRADIOL
     Indication: CONTRACEPTION
     Dosage: UNK
     Dates: start: 201110
  2. YAZ [Suspect]
     Active Substance: DROSPIRENONE\ETHINYL ESTRADIOL
     Indication: CONTRACEPTION
     Dosage: UNK
     Dates: start: 201110
  3. LORTAB [Concomitant]
     Active Substance: ACETAMINOPHEN\HYDROCODONE BITARTRATE
  4. IBUPROFEN. [Concomitant]
     Active Substance: IBUPROFEN
     Dosage: 800 MG, UNK

REACTIONS (14)
  - Deep vein thrombosis [None]
  - Fear [None]
  - Pain [None]
  - Emotional distress [None]
  - Injury [None]
  - General physical health deterioration [None]
  - Limb injury [None]
  - Impaired work ability [None]
  - Anhedonia [None]
  - Quality of life decreased [None]
  - Dysstasia [None]
  - Peripheral swelling [None]
  - Anxiety [None]
  - Hypoaesthesia [None]
